FAERS Safety Report 25790316 (Version 1)
Quarter: 2025Q3

REPORT INFORMATION
  Report Type: Spontaneous
  Country: EU (occurrence: EU)
  Receive Date: 20250911
  Receipt Date: 20250911
  Transmission Date: 20251020
  Serious: Yes (Hospitalization)
  Sender: RANBAXY
  Company Number: EU-SUN PHARMACEUTICAL INDUSTRIES LTD-2025RR-526240

PATIENT
  Age: 26 Year
  Sex: Male
  Weight: 83 kg

DRUGS (2)
  1. QUETIAPINE [Suspect]
     Active Substance: QUETIAPINE
     Indication: Bipolar disorder
     Dosage: 600 MILLIGRAM, DAILY
     Route: 048
     Dates: start: 202502, end: 20250409
  2. QUETIAPINE [Suspect]
     Active Substance: QUETIAPINE
     Dosage: 800 MILLIGRAM, DAILY
     Route: 048
     Dates: end: 202502

REACTIONS (2)
  - Suicidal ideation [Not Recovered/Not Resolved]
  - Suicidal behaviour [Recovered/Resolved]

NARRATIVE: CASE EVENT DATE: 20250301
